FAERS Safety Report 23452081 (Version 3)
Quarter: 2024Q2

REPORT INFORMATION
  Report Type: Spontaneous
  Country: PR (occurrence: PR)
  Receive Date: 20240129
  Receipt Date: 20240408
  Transmission Date: 20240715
  Serious: No
  Sender: FDA-Public Use
  Company Number: PR-PFIZER INC-202300340086

PATIENT
  Age: 59 Year
  Sex: Female

DRUGS (1)
  1. CIBINQO [Suspect]
     Active Substance: ABROCITINIB
     Indication: Eczema
     Dosage: 100 MG, DAILY
     Route: 048

REACTIONS (5)
  - Hypertension [Unknown]
  - Nasopharyngitis [Unknown]
  - Alopecia [Unknown]
  - Illness [Unknown]
  - Skin laceration [Unknown]
